FAERS Safety Report 7197706-0 (Version None)
Quarter: 2010Q4

REPORT INFORMATION
  Report Type: 
  Country: None (occurrence: None)
  Receive Date: 20101227
  Receipt Date: 20101216
  Transmission Date: 20110411
  Serious: Yes (Death, Congenital Anomaly)
  Sender: FDA-Public Use
  Company Number: JP-ASTRAZENECA-2010SE60478

PATIENT
  Age: 0 Year
  Weight: 2 kg

DRUGS (1)
  1. BLOPRESS [Suspect]
     Route: 064

REACTIONS (1)
  - FOETAL DISORDER [None]
